FAERS Safety Report 18070185 (Version 1)
Quarter: 2020Q3

REPORT INFORMATION
  Report Type: Spontaneous
  Country: FR (occurrence: FR)
  Receive Date: 20200727
  Receipt Date: 20200727
  Transmission Date: 20201103
  Serious: Yes (Other)
  Sender: FDA-Public Use
  Company Number: FR-AUROBINDO-AUR-APL-2020-036378

PATIENT
  Age: 69 Year
  Sex: Female

DRUGS (15)
  1. APREPITANT. [Suspect]
     Active Substance: APREPITANT
     Indication: PROPHYLAXIS OF NAUSEA AND VOMITING
     Dosage: 125 MILLIGRAM, 21 DAY
     Route: 048
     Dates: start: 20200424, end: 20200703
  2. EPORATIO [Concomitant]
     Active Substance: ERYTHROPOIETIN
     Indication: PRODUCT USED FOR UNKNOWN INDICATION
     Dosage: UNK
     Route: 065
     Dates: start: 20200604
  3. CIMETIDINE [Suspect]
     Active Substance: CIMETIDINE
     Indication: CHEMOTHERAPY SIDE EFFECT PROPHYLAXIS
     Dosage: 200 MILLIGRAM, 21 DAYS
     Route: 048
     Dates: start: 20200424, end: 20200703
  4. METHYLPREDNISOLONE. [Suspect]
     Active Substance: METHYLPREDNISOLONE
     Indication: CHEMOTHERAPY SIDE EFFECT PROPHYLAXIS
     Dosage: 60 MILLIGRAM, 21 DAYS
     Route: 048
     Dates: start: 20200424, end: 20200703
  5. PACLITAXEL. [Suspect]
     Active Substance: PACLITAXEL
     Indication: OVARIAN CANCER
     Dosage: 246 MILLIGRAM, 21 DAYS
     Route: 042
     Dates: start: 20200424
  6. KARDEGIC [Concomitant]
     Active Substance: ASPIRIN DL-LYSINE
     Indication: PRODUCT USED FOR UNKNOWN INDICATION
     Dosage: 1 DOSAGE FORM, ONCE A DAY
     Route: 048
  7. CARBOPLATIN. [Suspect]
     Active Substance: CARBOPLATIN
     Indication: OVARIAN CANCER
     Dosage: 380 MILLIGRAM, 21 DAYS
     Route: 042
     Dates: start: 20200424, end: 20200703
  8. CHOLECALCIFEROL [Concomitant]
     Active Substance: CHOLECALCIFEROL
     Indication: VITAMIN D DEFICIENCY
     Dosage: 1 DOSAGE FORM, 3 MONTH
     Route: 048
  9. INNOHEP [Concomitant]
     Active Substance: TINZAPARIN SODIUM
     Indication: PRODUCT USED FOR UNKNOWN INDICATION
     Dosage: 13000 INTERNATIONAL UNIT, ONCE A DAY
     Route: 058
  10. ONDANSETRON [Suspect]
     Active Substance: ONDANSETRON
     Indication: PROPHYLAXIS OF NAUSEA AND VOMITING
     Dosage: 8 MILLIGRAM, 21 DAYS
     Route: 048
     Dates: start: 20200424, end: 20200703
  11. PRAVASTATIN SODIUM. [Concomitant]
     Active Substance: PRAVASTATIN SODIUM
     Indication: HYPERCHOLESTEROLAEMIA
     Dosage: 20 MILLIGRAM, ONCE A DAY
     Route: 048
  12. DEXCHLORPHENIRAMINE MALEATE. [Suspect]
     Active Substance: DEXCHLORPHENIRAMINE MALEATE
     Indication: CHEMOTHERAPY SIDE EFFECT PROPHYLAXIS
     Dosage: 5 MILLIGRAM, 21 DAYS
     Route: 048
     Dates: start: 20200424, end: 20200703
  13. PERINDOPRIL [Concomitant]
     Active Substance: PERINDOPRIL
     Indication: HYPERTENSION
     Dosage: 8 MILLIGRAM, ONCE A DAY
     Route: 048
  14. PARIET [Concomitant]
     Active Substance: RABEPRAZOLE SODIUM
     Indication: GASTROOESOPHAGEAL REFLUX DISEASE
     Dosage: 1 DOSAGE FORM
     Route: 048
  15. LACTITOL [Concomitant]
     Active Substance: LACTITOL
     Indication: CONSTIPATION
     Dosage: UNK
     Route: 048

REACTIONS (2)
  - Erythema [Recovered/Resolved]
  - Hypertension [Recovered/Resolved]

NARRATIVE: CASE EVENT DATE: 20200605
